FAERS Safety Report 7487229-3 (Version None)
Quarter: 2011Q2

REPORT INFORMATION
  Report Type: 
  Country: None (occurrence: None)
  Receive Date: 20110518
  Receipt Date: 20110419
  Transmission Date: 20111010
  Serious: Yes (Other)
  Sender: FDA-Public Use
  Company Number: US-BAYER-2011-004047

PATIENT
  Age: 28 Year
  Sex: Female
  Weight: 87.982 kg

DRUGS (8)
  1. PREVACID [Concomitant]
  2. ADIPEX [Concomitant]
  3. HYDROCHLOROTHIAZIDE [Concomitant]
  4. PHENTERMINE [Concomitant]
  5. YAZ [Suspect]
     Indication: ORAL CONTRACEPTION
     Dosage: UNK
     Dates: start: 20071219, end: 20090217
  6. POTASSIUM CHLORIDE [Concomitant]
  7. MAGNESIUM SUPPLEMENT [Concomitant]
  8. DROSPIRENONE AND ETHINYL ESTRADIOL [Suspect]
     Indication: ORAL CONTRACEPTION
     Dosage: UNK
     Dates: start: 20090720, end: 20091001

REACTIONS (7)
  - BILIARY COLIC [None]
  - GASTROOESOPHAGEAL REFLUX DISEASE [None]
  - CHOLECYSTECTOMY [None]
  - CHOLECYSTITIS CHRONIC [None]
  - CHEST PAIN [None]
  - NAUSEA [None]
  - EATING DISORDER [None]
